FAERS Safety Report 9759847 (Version 5)
Quarter: 2014Q2

REPORT INFORMATION
  Report Type: Report from Study
  Country: DE (occurrence: DE)
  Receive Date: 20131216
  Receipt Date: 20140602
  Transmission Date: 20141212
  Serious: Yes (Hospitalization, Other)
  Sender: FDA-Public Use
  Company Number: DE-CELGENEUS-062-21660-13120751

PATIENT
  Age: 46 Year
  Sex: Female
  Weight: 75 kg

DRUGS (9)
  1. ABRAXANE [Suspect]
     Indication: BREAST CANCER
     Dosage: 125MG/M2
     Route: 041
     Dates: start: 20130802, end: 20130912
  2. ABRAXANE [Suspect]
     Dosage: 182 MILLIGRAM
     Route: 041
     Dates: start: 20130920
  3. EPIRUBICIN [Suspect]
     Indication: BREAST CANCER
     Dosage: 90MG/M2
     Route: 041
     Dates: start: 20131025, end: 20131115
  4. EPIRUBICIN [Suspect]
     Dosage: 158 MILLIGRAM
     Route: 041
     Dates: start: 20131206
  5. CYCLOPHOSPHAMIDE [Suspect]
     Indication: BREAST CANCER
     Dosage: 1116 MILLIGRAM
     Route: 041
     Dates: start: 20131025, end: 20131115
  6. CYCLOPHOSPHAMIDE [Suspect]
     Dosage: 1056 MILLIGRAM
     Route: 041
     Dates: start: 20131025, end: 20131115
  7. CANDESARTAN [Concomitant]
     Indication: PRODUCT USED FOR UNKNOWN INDICATION
     Route: 065
     Dates: start: 201210
  8. L THYROXIN [Concomitant]
     Indication: PRODUCT USED FOR UNKNOWN INDICATION
     Dosage: 150 MILLIGRAM
     Route: 065
     Dates: start: 200706
  9. HYDROCHLOROTHIAZIDE [Concomitant]
     Indication: PRODUCT USED FOR UNKNOWN INDICATION
     Dosage: 12.5 MILLIGRAM
     Route: 065
     Dates: start: 20131018

REACTIONS (1)
  - Stomatitis [Recovered/Resolved]
